FAERS Safety Report 23969701 (Version 1)
Quarter: 2024Q2

REPORT INFORMATION
  Report Type: Spontaneous
  Country: HR (occurrence: HR)
  Receive Date: 20240613
  Receipt Date: 20240613
  Transmission Date: 20240715
  Serious: Yes (Other)
  Sender: FDA-Public Use
  Company Number: None

PATIENT
  Sex: Female

DRUGS (3)
  1. TRAMADOL HYDROCHLORIDE [Suspect]
     Active Substance: TRAMADOL HYDROCHLORIDE
     Dosage: UNK
     Route: 048
     Dates: start: 20240430, end: 20240430
  2. DIAZEPAM [Suspect]
     Active Substance: DIAZEPAM
     Dosage: UNK
     Route: 048
     Dates: start: 20240430, end: 20240430
  3. ZOLPIDEM TARTRATE [Suspect]
     Active Substance: ZOLPIDEM TARTRATE
     Dosage: UNK
     Route: 048
     Dates: start: 20240430, end: 20240430

REACTIONS (2)
  - Suicide attempt [Unknown]
  - Disorientation [Unknown]

NARRATIVE: CASE EVENT DATE: 20240430
